FAERS Safety Report 6772068-9 (Version None)
Quarter: 2010Q2

REPORT INFORMATION
  Report Type: 
  Country: None (occurrence: None)
  Receive Date: 20100616
  Receipt Date: 20100609
  Transmission Date: 20101027
  Serious: Yes (Other)
  Sender: FDA-Public Use
  Company Number: A0864038A

PATIENT
  Age: 72 Year
  Sex: Female

DRUGS (10)
  1. PAXIL [Suspect]
     Indication: DEPRESSION
     Dosage: 20MG PER DAY
     Route: 048
  2. AZILECT [Suspect]
  3. ATENOLOL [Concomitant]
  4. PLAVIX [Concomitant]
  5. SEROQUEL [Concomitant]
  6. CRESTOR [Concomitant]
  7. GALANTAMINE [Concomitant]
  8. ASPIRIN [Concomitant]
  9. SYNTHROID [Concomitant]
  10. PRILOSEC [Concomitant]

REACTIONS (9)
  - AMNESIA [None]
  - CEREBROVASCULAR ACCIDENT [None]
  - CONFUSIONAL STATE [None]
  - DRUG INTERACTION [None]
  - IRRITABILITY [None]
  - MEMORY IMPAIRMENT [None]
  - MOOD ALTERED [None]
  - RESTLESSNESS [None]
  - THINKING ABNORMAL [None]
